FAERS Safety Report 8349098 (Version 4)
Quarter: 2012Q4

REPORT INFORMATION
  Report Type: Spontaneous
  Country: US (occurrence: None)
  Receive Date: 20120111
  Receipt Date: 20120820
  Transmission Date: 20130627
  Serious: Yes (Other)
  Sender: FDA-Public Use
  Company Number: AUR-APL-2012-00197

PATIENT
  Weight: 136.08 kg

DRUGS (8)
  1. METFORMIN HYDROCHLORIDE [Suspect]
     Indication: DIABETES MELLITUS
     Dosage: 2000 MG (1000 MG, 2 IN 1 D), ORAL
     Route: 048
     Dates: start: 20120102, end: 20120103
  2. CLARINEX [Concomitant]
  3. SYNTHROID [Concomitant]
  4. SINGULAIR [Concomitant]
  5. DIOVAN [Concomitant]
  6. HYDROCHLOROTHIAZIDE [Concomitant]
  7. CRESTOR [Concomitant]
  8. NASONEX [Concomitant]

REACTIONS (11)
  - Product quality issue [None]
  - Feeling abnormal [None]
  - Gait disturbance [None]
  - Product substitution issue [None]
  - Pain [None]
  - Cardiac disorder [None]
  - Renal disorder [None]
  - Back disorder [None]
  - Headache [None]
  - Initial insomnia [None]
  - Restlessness [None]
